FAERS Safety Report 8318932-0 (Version None)
Quarter: 2012Q2

REPORT INFORMATION
  Report Type: 
  Country: None (occurrence: None)
  Receive Date: 20120427
  Receipt Date: 20120419
  Transmission Date: 20120825
  Serious: Yes (Other)
  Sender: FDA-Public Use
  Company Number: CA-JNJFOC-20120409008

PATIENT
  Sex: Male
  Weight: 68.8 kg

DRUGS (2)
  1. REMICADE [Suspect]
     Indication: CROHN'S DISEASE
     Route: 042
     Dates: start: 20110201
  2. PREDNISONE TAB [Concomitant]
     Route: 065

REACTIONS (3)
  - VOMITING [None]
  - HAEMATOCHEZIA [None]
  - DIARRHOEA [None]
